FAERS Safety Report 4934044-8 (Version None)
Quarter: 2006Q1

REPORT INFORMATION
  Report Type: 
  Country: None (occurrence: None)
  Receive Date: 20060303
  Receipt Date: 20060222
  Transmission Date: 20060701
  Serious: Yes (Hospitalization)
  Sender: FDA-Public Use
  Company Number: 2006BI003265

PATIENT
  Age: 46 Year
  Sex: Male

DRUGS (6)
  1. AVONEX [Suspect]
     Indication: MULTIPLE SCLEROSIS
     Dosage: 30 UG;QW;IM
     Route: 030
  2. BACLOFEN [Concomitant]
  3. ASPIRIN [Concomitant]
  4. PEPCID [Concomitant]
  5. DIPHENHYDRAMINE [Concomitant]
  6. IBUPROFEN [Concomitant]

REACTIONS (19)
  - BLOOD PRESSURE FLUCTUATION [None]
  - CEREBELLAR ATROPHY [None]
  - CEREBRAL ATROPHY [None]
  - COORDINATION ABNORMAL [None]
  - DIFFICULTY IN WALKING [None]
  - DYSARTHRIA [None]
  - HEADACHE [None]
  - HYPERGLYCAEMIA [None]
  - MULTIPLE SCLEROSIS [None]
  - NECK PAIN [None]
  - NEUROGENIC BLADDER [None]
  - PAIN IN EXTREMITY [None]
  - ROTATOR CUFF SYNDROME [None]
  - SHOULDER PAIN [None]
  - URINARY RETENTION [None]
  - URINARY TRACT DISORDER [None]
  - URINE FLOW DECREASED [None]
  - VISION BLURRED [None]
  - VISUAL ACUITY REDUCED [None]
